FAERS Safety Report 8721242 (Version 5)
Quarter: 2013Q4

REPORT INFORMATION
  Report Type: Spontaneous
  Country: US (occurrence: US)
  Receive Date: 20120813
  Receipt Date: 20131126
  Transmission Date: 20140711
  Serious: Yes (Hospitalization, Other)
  Sender: FDA-Public Use
  Company Number: US-009507513-1208USA002541

PATIENT
  Sex: Female

DRUGS (6)
  1. FOSAMAX [Suspect]
     Indication: OSTEOPOROSIS
     Dosage: 10 MG, QD
     Route: 048
     Dates: start: 20001108
  2. FOSAMAX [Suspect]
     Indication: PROPHYLAXIS
     Dosage: 70 MG, QW
     Route: 048
     Dates: start: 20001108, end: 2008
  3. FOSAMAX [Suspect]
     Indication: OSTEOPOROSIS
     Dosage: 70 MG, UNK
     Route: 048
     Dates: start: 20001108, end: 20100406
  4. FOSAMAX [Suspect]
     Indication: PROPHYLAXIS
  5. ALENDRONATE SODIUM [Suspect]
     Indication: OSTEOPOROSIS
     Dosage: 70 MG, UNK
     Dates: end: 20100406
  6. ALENDRONATE SODIUM [Suspect]
     Indication: PROPHYLAXIS

REACTIONS (14)
  - Femur fracture [Unknown]
  - Intramedullary rod insertion [Unknown]
  - Breast cancer [Unknown]
  - Humerus fracture [Recovered/Resolved]
  - Fracture [Unknown]
  - Low turnover osteopathy [Unknown]
  - Medical device complication [Not Recovered/Not Resolved]
  - Rib fracture [Unknown]
  - Fall [Unknown]
  - Osteopenia [Unknown]
  - Fracture [Unknown]
  - Cervical vertebral fracture [Recovered/Resolved]
  - Bone lesion [Unknown]
  - Thoracic vertebral fracture [Recovered/Resolved]
